FAERS Safety Report 8014534-4 (Version None)
Quarter: 2011Q4

REPORT INFORMATION
  Report Type: 
  Country: None (occurrence: None)
  Receive Date: 20111229
  Receipt Date: 20111222
  Transmission Date: 20120403
  Serious: Yes (Hospitalization, Other)
  Sender: FDA-Public Use
  Company Number: US-BAYER-2011-123857

PATIENT
  Age: 61 Year
  Sex: Female
  Weight: 90.58 kg

DRUGS (13)
  1. ACETYLSALICYLIC ACID SRT [Suspect]
  2. PEPCID [Concomitant]
  3. NEURONTIN [Concomitant]
  4. SEROQUEL [Concomitant]
  5. RIVAROXABAN [Suspect]
     Indication: KNEE OPERATION
     Dosage: DOSAGE FORM: TABLET
     Route: 048
     Dates: start: 20111004, end: 20111006
  6. SYNTHROID [Concomitant]
  7. ELAVIL [Concomitant]
  8. PROZAC [Concomitant]
  9. DILANTIN [Concomitant]
  10. ZANAFLEX [Concomitant]
  11. LORTAB [Concomitant]
     Indication: PAIN MANAGEMENT
  12. VALIUM [Concomitant]
  13. LASIX [Concomitant]

REACTIONS (1)
  - HAEMORRHAGIC ANAEMIA [None]
